FAERS Safety Report 7843303-0 (Version None)
Quarter: 2011Q4

REPORT INFORMATION
  Report Type: 
  Country: None (occurrence: None)
  Receive Date: 20111025
  Receipt Date: 20111019
  Transmission Date: 20120403
  Serious: Yes (Other)
  Sender: FDA-Public Use
  Company Number: US-SANOFI-AVENTIS-2011SA069693

PATIENT
  Age: 92 Year
  Sex: Female

DRUGS (5)
  1. SYNTHROID [Concomitant]
  2. SIMVASTATIN [Suspect]
     Route: 065
  3. MULTAQ [Suspect]
     Indication: ATRIAL FIBRILLATION
     Route: 048
     Dates: start: 20100101
  4. FUROSEMIDE [Concomitant]
     Indication: SWELLING
     Dosage: 40MG, 2 TABLETS IN THE MORNING AND ONE AT NIGHT
  5. DIGOXIN [Concomitant]

REACTIONS (3)
  - BASAL CELL CARCINOMA [None]
  - MUSCULAR WEAKNESS [None]
  - CONTUSION [None]
